FAERS Safety Report 18558907 (Version 2)
Quarter: 2021Q1

REPORT INFORMATION
  Report Type: Spontaneous
  Country: US (occurrence: US)
  Receive Date: 20201130
  Receipt Date: 20210105
  Transmission Date: 20210419
  Serious: No
  Sender: FDA-Public Use
  Company Number: US-ASTRAZENECA-2020SF51589

PATIENT
  Sex: Female
  Weight: 68 kg

DRUGS (1)
  1. SYMBICORT [Suspect]
     Active Substance: BUDESONIDE\FORMOTEROL FUMARATE DIHYDRATE
     Indication: CHRONIC OBSTRUCTIVE PULMONARY DISEASE
     Dosage: 160/4.5 UG, FOR YEARS
     Route: 055

REACTIONS (5)
  - Drug delivery system issue [Unknown]
  - Dyspnoea [Not Recovered/Not Resolved]
  - Eye disorder [Unknown]
  - Device use issue [Unknown]
  - Device malfunction [Unknown]
